FAERS Safety Report 20885541 (Version 1)
Quarter: 2022Q2

REPORT INFORMATION
  Report Type: Spontaneous
  Country: US (occurrence: US)
  Receive Date: 20220527
  Receipt Date: 20220527
  Transmission Date: 20220720
  Serious: No
  Sender: FDA-Public Use
  Company Number: US-PERRIGO-22US003704

PATIENT
  Age: 88 Year
  Sex: Female
  Weight: 49.887 kg

DRUGS (2)
  1. DICLOFENAC SODIUM [Suspect]
     Active Substance: DICLOFENAC SODIUM
     Indication: Plantar fasciitis
     Dosage: 1 APPLICATION, SINGLE
     Route: 061
     Dates: start: 20220303, end: 20220303
  2. DICLOFENAC SODIUM [Suspect]
     Active Substance: DICLOFENAC SODIUM
     Dosage: 1 APPLICATION, SINGLE
     Route: 061
     Dates: start: 20220307, end: 20220307

REACTIONS (1)
  - Off label use [Recovered/Resolved]

NARRATIVE: CASE EVENT DATE: 20220303
